FAERS Safety Report 4521158-X (Version None)
Quarter: 2004Q4

REPORT INFORMATION
  Report Type: 
  Country: None (occurrence: None)
  Receive Date: 20041208
  Receipt Date: 20041125
  Transmission Date: 20050328
  Serious: Yes (Hospitalization, Other)
  Sender: FDA-Public Use
  Company Number: PL-MERCK-0411POL00009

PATIENT
  Age: 51 Year
  Sex: Female

DRUGS (3)
  1. SINGULAIR [Suspect]
     Indication: ASTHMA
     Route: 048
     Dates: start: 20040217, end: 20040901
  2. PULMICORT [Concomitant]
     Indication: ASTHMA
     Route: 055
     Dates: start: 20010113, end: 20040901
  3. FORMOTEROL FUMARATE [Concomitant]
     Indication: ASTHMA
     Route: 055
     Dates: start: 20040217, end: 20040901

REACTIONS (3)
  - ACUTE MYOCARDIAL INFARCTION [None]
  - ALLERGIC GRANULOMATOUS ANGIITIS [None]
  - PERICARDIAL EFFUSION [None]
